FAERS Safety Report 4819064-6 (Version None)
Quarter: 2005Q4

REPORT INFORMATION
  Report Type: 
  Country: None (occurrence: None)
  Receive Date: 20051103
  Receipt Date: 20051019
  Transmission Date: 20060501
  Serious: Yes (Death)
  Sender: FDA-Public Use
  Company Number: GB-AVENTIS-200513998EU

PATIENT
  Sex: Female

DRUGS (9)
  1. CARBOCISTEINE [Suspect]
  2. LEVOFLOXACIN [Suspect]
  3. FUROSEMIDE [Suspect]
  4. ATROVENT [Suspect]
     Indication: CHRONIC OBSTRUCTIVE PULMONARY DISEASE
     Route: 055
  5. AMINOPHYLLINE [Suspect]
  6. SALBUTAMOL [Suspect]
     Dosage: DOSE: 2 PUFFS
     Route: 055
  7. TRAMADOL [Suspect]
  8. PREDNISOLONE [Suspect]
  9. SALBUTAMOL NEBULISER [Concomitant]

REACTIONS (2)
  - CHRONIC OBSTRUCTIVE PULMONARY DISEASE [None]
  - INFECTION [None]
